FAERS Safety Report 8455980-4 (Version None)
Quarter: 2012Q2

REPORT INFORMATION
  Report Type: 
  Country: None (occurrence: None)
  Receive Date: 20120621
  Receipt Date: 20120612
  Transmission Date: 20120825
  Serious: Yes (Other)
  Sender: FDA-Public Use
  Company Number: US-ASTRAZENECA-2012SE39141

PATIENT
  Age: 70 Year
  Sex: Female
  Weight: 79.4 kg

DRUGS (7)
  1. NEXIUM [Concomitant]
     Indication: GASTROOESOPHAGEAL REFLUX DISEASE
     Route: 048
  2. NADOLOL [Concomitant]
     Indication: HYPERTENSION
  3. PRILOSEC [Suspect]
     Indication: GASTROOESOPHAGEAL REFLUX DISEASE
     Route: 048
  4. LOSARTAN POTASSIUM [Concomitant]
     Indication: HYPERTENSION
  5. ATORVASTATIN CALCIUM [Suspect]
     Dosage: (RANBAXY PRODUCT)
     Route: 048
     Dates: start: 20120416, end: 20120424
  6. TRIAMTERENE AND HYDROCHLOROTHIAZIDE [Concomitant]
     Indication: HYPERTENSION
     Route: 048
  7. ATORVASTATIN CALCIUM [Suspect]
     Dosage: LIPITOR
     Route: 048
     Dates: end: 20120401

REACTIONS (8)
  - BLOOD CHOLESTEROL INCREASED [None]
  - LIP SWELLING [None]
  - LIP PAIN [None]
  - ORAL DISCOMFORT [None]
  - DRUG EFFECT DECREASED [None]
  - DRY MOUTH [None]
  - BLOOD TRIGLYCERIDES INCREASED [None]
  - LOW DENSITY LIPOPROTEIN INCREASED [None]
